FAERS Safety Report 7278946-9 (Version None)
Quarter: 2011Q1

REPORT INFORMATION
  Report Type: 
  Country: None (occurrence: None)
  Receive Date: 20110207
  Receipt Date: 20110125
  Transmission Date: 20110831
  Serious: Yes (Other)
  Sender: FDA-Public Use
  Company Number: PHHY2010ZA73881

PATIENT
  Sex: Female

DRUGS (4)
  1. HORMONES NOS [Concomitant]
     Indication: OSTEOPOROSIS
  2. CRESTOR [Concomitant]
     Indication: HYPERCHOLESTEROLAEMIA
  3. ACLASTA [Suspect]
     Dosage: 5 MG/100 ML
     Route: 042
     Dates: start: 20101022
  4. ATACAND HCT [Concomitant]
     Indication: HYPERTENSION

REACTIONS (16)
  - SWELLING [None]
  - PAIN [None]
  - BREAST SWELLING [None]
  - MYALGIA [None]
  - ABDOMINAL DISTENSION [None]
  - PALPITATIONS [None]
  - BONE DENSITY ABNORMAL [None]
  - PREMENSTRUAL SYNDROME [None]
  - WEIGHT INCREASED [None]
  - PYREXIA [None]
  - BLOOD PRESSURE FLUCTUATION [None]
  - TRISMUS [None]
  - BREAST TENDERNESS [None]
  - DRY EYE [None]
  - INFLUENZA LIKE ILLNESS [None]
  - MALAISE [None]
